FAERS Safety Report 6312657-9 (Version None)
Quarter: 2009Q3

REPORT INFORMATION
  Report Type: 
  Country: None (occurrence: None)
  Receive Date: 20090818
  Receipt Date: 20090811
  Transmission Date: 20100115
  Serious: Yes (Death)
  Sender: FDA-Public Use
  Company Number: US-BIOGENIDEC-2009BI022745

PATIENT
  Sex: Male

DRUGS (7)
  1. TYSABRI [Suspect]
     Indication: MULTIPLE SCLEROSIS
     Route: 042
     Dates: start: 20070301, end: 20080122
  2. OXYCODONE [Concomitant]
  3. PERCOCET [Concomitant]
  4. NEURONTIN [Concomitant]
  5. LEXAPRO [Concomitant]
  6. TEMAZEPAM [Concomitant]
  7. BACLOFEN [Concomitant]

REACTIONS (3)
  - DRUG INEFFECTIVE [None]
  - INFECTED SKIN ULCER [None]
  - MYOCARDIAL INFARCTION [None]
